FAERS Safety Report 7934181-X (Version None)
Quarter: 2011Q4

REPORT INFORMATION
  Report Type: 
  Country: None (occurrence: None)
  Receive Date: 20111122
  Receipt Date: 20110927
  Transmission Date: 20120403
  Serious: Yes (Hospitalization, Other)
  Sender: FDA-Public Use
  Company Number: BR-MEDIMMUNE-MEDI-0013588

PATIENT
  Sex: Male
  Weight: 5 kg

DRUGS (6)
  1. VITAMIN AD [Concomitant]
     Indication: VITAMIN SUPPLEMENTATION
     Route: 048
     Dates: start: 20110325
  2. DOMPERIDONE [Concomitant]
     Indication: REFLUX GASTRITIS
     Route: 048
  3. SYNAGIS [Suspect]
     Indication: BRONCHOPULMONARY DYSPLASIA
     Route: 030
     Dates: start: 20110823, end: 20110823
  4. FERRIC HYDROXIDE POLYMALTOSE COMPLEX [Concomitant]
     Route: 048
     Dates: start: 20110325
  5. OXYGEN [Concomitant]
  6. OMEPRAZOLE [Concomitant]

REACTIONS (9)
  - FATIGUE [None]
  - RESPIRATORY ARREST [None]
  - PNEUMONIA [None]
  - BRONCHIOLITIS [None]
  - WHEEZING [None]
  - CYANOSIS [None]
  - RESTLESSNESS [None]
  - COUGH [None]
  - CRYING [None]
